FAERS Safety Report 18581664 (Version 1)
Quarter: 2020Q4

REPORT INFORMATION
  Report Type: Spontaneous
  Country: US (occurrence: US)
  Receive Date: 20201203
  Receipt Date: 20201203
  Transmission Date: 20210114
  Serious: No
  Sender: FDA-Public Use
  Company Number: None

PATIENT
  Sex: Female

DRUGS (1)
  1. EFAVIRENZ/EMTRICIT/TENOFO 600/200/300MG TEVA PHARMACEUTICALS [Suspect]
     Active Substance: EFAVIRENZ\EMTRICITABINE\TENOFOVIR DISOPROXIL FUMARATE
     Indication: HEADACHE
     Route: 048
     Dates: start: 20201107

REACTIONS (2)
  - Product substitution issue [None]
  - Headache [None]
